FAERS Safety Report 8912050 (Version 2)
Quarter: 2013Q1

REPORT INFORMATION
  Report Type: Spontaneous
  Country: US (occurrence: US)
  Receive Date: 20121115
  Receipt Date: 20130124
  Transmission Date: 20140127
  Serious: No
  Sender: FDA-Public Use
  Company Number: US-ASTRAZENECA-2012SE84957

PATIENT
  Age: 69 Year
  Sex: Female

DRUGS (3)
  1. SYMBICORT PMDI [Suspect]
     Dosage: 160/4.5 MCG, 2 PUFFS, TWO TIMES A DAY
     Route: 055
     Dates: start: 20090908
  2. SPIRIVA [Concomitant]
     Indication: ASTHMA
  3. SINGULAR [Concomitant]
     Indication: ASTHMA

REACTIONS (1)
  - Emphysema [Unknown]
